FAERS Safety Report 7203541-7 (Version None)
Quarter: 2010Q4

REPORT INFORMATION
  Report Type: 
  Country: None (occurrence: None)
  Receive Date: 20101230
  Receipt Date: 20101222
  Transmission Date: 20110411
  Serious: Yes (Hospitalization, Other)
  Sender: FDA-Public Use
  Company Number: US-ASTELLAS-2010US005017

PATIENT

DRUGS (8)
  1. PROGRAF [Suspect]
     Indication: RENAL TRANSPLANT
     Dosage: UNK
     Route: 048
     Dates: start: 20090614
  2. PROGRAF [Suspect]
     Dosage: 7 MG, BID
     Route: 048
  3. PROGRAF [Suspect]
     Dosage: 5 MG, BID
     Route: 048
  4. PREDNISONE [Concomitant]
     Indication: PRODUCT USED FOR UNKNOWN INDICATION
     Dosage: 5 MG, UID/QD
     Route: 048
  5. NORVASC [Concomitant]
     Indication: HYPERTENSION
     Dosage: 10 MG, UNKNOWN/D
     Route: 065
  6. ATENOLOL [Concomitant]
     Indication: HYPERTENSION
     Dosage: 100 MG, UNKNOWN/D
     Route: 065
  7. IMURAN [Concomitant]
     Indication: RENAL TRANSPLANT
     Dosage: 100 MG, UID/QD
     Route: 048
  8. ZEMPLAR [Concomitant]
     Indication: PRODUCT USED FOR UNKNOWN INDICATION
     Dosage: 1 UG, UNKNOWN/D
     Route: 065

REACTIONS (3)
  - CROHN'S DISEASE [None]
  - KIDNEY TRANSPLANT REJECTION [None]
  - TREATMENT NONCOMPLIANCE [None]
